FAERS Safety Report 21254275 (Version 1)
Quarter: 2022Q3

REPORT INFORMATION
  Report Type: Spontaneous
  Country: US (occurrence: None)
  Receive Date: 20220824
  Receipt Date: 20220824
  Transmission Date: 20221027
  Serious: Yes (Hospitalization)
  Sender: FDA-Public Use
  Company Number: None

PATIENT
  Sex: Male

DRUGS (13)
  1. SILDENAFIL [Suspect]
     Active Substance: SILDENAFIL
     Indication: Pulmonary arterial hypertension
     Dosage: 20 MG ORAL?TAKE 1 TABLET BY MOUTH THREE TIMES DAILY
     Route: 048
     Dates: start: 20190124
  2. ALBUTEROL NEG [Concomitant]
  3. ATORVASTATIN [Concomitant]
     Active Substance: ATORVASTATIN
  4. BIOTIN FORTE TAB [Concomitant]
  5. DOVONEX CRE [Concomitant]
  6. LORATADINE [Concomitant]
     Active Substance: LORATADINE
  7. METFORMIN [Concomitant]
  8. OPSUMIT TAB [Concomitant]
  9. POT CHLORIDE TAB [Concomitant]
  10. SYMBICORT AER [Concomitant]
  11. TORSEMIDE TAB [Concomitant]
  12. VITAMIN D CAP [Concomitant]
  13. B-12 SUB [Concomitant]

REACTIONS (1)
  - Toe amputation [None]
